FAERS Safety Report 15664097 (Version 2)
Quarter: 2018Q4

REPORT INFORMATION
  Report Type: Spontaneous
  Country: US (occurrence: US)
  Receive Date: 20181128
  Receipt Date: 20181228
  Transmission Date: 20190205
  Serious: Yes (Other)
  Sender: FDA-Public Use
  Company Number: US-009507513-1811USA009714

PATIENT
  Age: 45 Year
  Sex: Male
  Weight: 121.09 kg

DRUGS (3)
  1. ZEPATIER [Suspect]
     Active Substance: ELBASVIR\GRAZOPREVIR
     Indication: HEPATITIS C
     Dosage: DOSE: 50-100 MG, DAILY
     Route: 048
     Dates: start: 20170311, end: 20170603
  2. NAPROXEN. [Concomitant]
     Active Substance: NAPROXEN
     Dosage: TOTAL DAILY DOSE: 375 MILLIGRAM, FREQUENCY: UNKNOWN
     Route: 048
     Dates: start: 20170314, end: 20170620
  3. CYCLOBENZAPRINE HYDROCHLORIDE. [Concomitant]
     Active Substance: CYCLOBENZAPRINE HYDROCHLORIDE
     Dosage: 10 MILLIGRAM, PRN
     Route: 048
     Dates: start: 20160926, end: 20170620

REACTIONS (3)
  - Surgery [Unknown]
  - Treatment failure [Unknown]
  - Hepatitis C [Not Recovered/Not Resolved]

NARRATIVE: CASE EVENT DATE: 2017
